FAERS Safety Report 8194992-5 (Version None)
Quarter: 2012Q1

REPORT INFORMATION
  Report Type: 
  Country: None (occurrence: None)
  Receive Date: 20120308
  Receipt Date: 20110816
  Transmission Date: 20120608
  Serious: No
  Sender: FDA-Public Use
  Company Number: US-GLAXOSMITHKLINE-A0941189A

PATIENT
  Age: 69 Year
  Sex: Male

DRUGS (1)
  1. NICORETTE [Suspect]
     Indication: EX-TOBACCO USER
     Dates: start: 20061101

REACTIONS (3)
  - INTENTIONAL DRUG MISUSE [None]
  - DYSPHONIA [None]
  - NICOTINE DEPENDENCE [None]
